FAERS Safety Report 9859353 (Version 4)
Quarter: 2014Q2

REPORT INFORMATION
  Report Type: Report from Study
  Country: AU (occurrence: AU)
  Receive Date: 20140131
  Receipt Date: 20140407
  Transmission Date: 20141212
  Serious: Yes (Other)
  Sender: FDA-Public Use
  Company Number: AU-ASTELLAS-2014EU000802

PATIENT
  Age: 74 Year
  Sex: Male
  Weight: 75.2 kg

DRUGS (12)
  1. PLACEBO [Suspect]
     Indication: PROSTATE CANCER METASTATIC
     Dosage: UNK
     Route: 065
     Dates: start: 20111123
  2. ENZALUTAMIDE [Suspect]
     Indication: PROSTATE CANCER
     Dosage: 160 MG, UID/QD
     Route: 048
     Dates: start: 20140109, end: 20140122
  3. ENZALUTAMIDE [Suspect]
     Dosage: 80 MG, UID/QD
     Route: 048
     Dates: start: 20140207, end: 20140213
  4. ENZALUTAMIDE [Suspect]
     Dosage: 160 MG, UID/QD
     Route: 048
     Dates: start: 20140214
  5. PARIET [Concomitant]
     Indication: GASTROOESOPHAGEAL REFLUX DISEASE
     Dosage: 20 MG, UID/QD
     Route: 048
     Dates: start: 20110919
  6. ZOLADEX                            /00732101/ [Concomitant]
     Indication: PROSTATE CANCER
     Dosage: 10.8 MG, OTHER
     Route: 058
     Dates: start: 2004
  7. PANADOL OSTEO [Concomitant]
     Indication: TUMOUR PAIN
     Dosage: 665 MG, TID
     Route: 048
     Dates: start: 20111031
  8. PANADOL OSTEO [Concomitant]
     Dosage: 665 MG, TID
     Route: 048
     Dates: start: 20111031
  9. CALCIUM +VIT D [Concomitant]
     Indication: OSTEOPENIA
     Dosage: 1 UNK, UID/QD
     Route: 048
     Dates: start: 20140109, end: 20140120
  10. PREDNISOLONE [Concomitant]
     Indication: PROSTATE CANCER
     Dosage: 8.5 MG, UID/QD
     Route: 048
     Dates: start: 20140109
  11. PREDNISOLONE [Concomitant]
     Dosage: 5 MG, BID
     Route: 048
     Dates: start: 20120308, end: 20140108
  12. FENAC [Concomitant]
     Indication: TUMOUR PAIN
     Dosage: 50 MG, PRN
     Route: 048
     Dates: start: 20111001

REACTIONS (1)
  - Rash maculo-papular [Recovered/Resolved]
